FAERS Safety Report 11871114 (Version 4)
Quarter: 2016Q1

REPORT INFORMATION
  Report Type: Spontaneous
  Country: JP (occurrence: JP)
  Receive Date: 20151228
  Receipt Date: 20160212
  Transmission Date: 20160526
  Serious: Yes (Hospitalization, Other)
  Sender: FDA-Public Use
  Company Number: JP-VIIV HEALTHCARE LIMITED-JP2015JPN182141

PATIENT
  Age: 61 Year
  Sex: Male
  Weight: 58 kg

DRUGS (8)
  1. ZEFIX [Suspect]
     Active Substance: LAMIVUDINE
     Indication: HEPATITIS B
     Dosage: 100 MG, 1D
     Route: 048
     Dates: end: 20160101
  2. HEPSERA [Suspect]
     Active Substance: ADEFOVIR DIPIVOXIL
     Indication: HEPATITIS B
     Dosage: 10 MG, 1D
     Route: 048
     Dates: end: 20160101
  3. ALANTA [Concomitant]
     Dosage: UNK
  4. TRANCOLON [Concomitant]
     Active Substance: MEPENZOLATE BROMIDE
     Dosage: UNK
  5. BASEN [Concomitant]
     Active Substance: VOGLIBOSE
     Dosage: UNK
  6. SG [Concomitant]
     Active Substance: ACETAMINOPHEN\APRONALIDE\CAFFEINE\PROPYPHENAZONE
     Dosage: UNK
  7. NIPOLAZIN [Concomitant]
     Dosage: UNK
  8. BRUFEN [Concomitant]
     Active Substance: IBUPROFEN
     Dosage: UNK

REACTIONS (8)
  - Pneumonia aspiration [Unknown]
  - Respiratory failure [Unknown]
  - Decubitus ulcer [Unknown]
  - Depressed level of consciousness [Unknown]
  - Upper gastrointestinal haemorrhage [Unknown]
  - Vomiting [Unknown]
  - Cerebral haemorrhage [Recovered/Resolved with Sequelae]
  - Dehydration [Unknown]

NARRATIVE: CASE EVENT DATE: 20151223
